FAERS Safety Report 9293108 (Version 1)
Quarter: 2013Q2

REPORT INFORMATION
  Report Type: Spontaneous
  Country: US (occurrence: None)
  Receive Date: 20130514
  Receipt Date: 20130514
  Transmission Date: 20140414
  Serious: Yes (Other)
  Sender: FDA-Public Use
  Company Number: 001526105A

PATIENT
  Age: 19 Year
  Sex: Female

DRUGS (1)
  1. PROACTIV SOLUTION REPAIRING TREATMENT [Suspect]
     Indication: ACNE
     Route: 059
     Dates: start: 20130205, end: 20130402

REACTIONS (4)
  - Erythema [None]
  - Eye swelling [None]
  - Throat tightness [None]
  - Dyspnoea [None]
